FAERS Safety Report 19859876 (Version 1)
Quarter: 2021Q3

REPORT INFORMATION
  Report Type: Spontaneous
  Country: US (occurrence: US)
  Receive Date: 20210920
  Receipt Date: 20210920
  Transmission Date: 20211014
  Serious: Yes (Disabling)
  Sender: FDA-Public Use
  Company Number: None

PATIENT
  Age: 52 Year
  Sex: Female
  Weight: 57.15 kg

DRUGS (2)
  1. FLAGYL [Suspect]
     Active Substance: METRONIDAZOLE\METRONIDAZOLE HYDROCHLORIDE
     Indication: TOOTHACHE
     Dosage: ?          QUANTITY:10 CAPSULE(S);?
     Dates: start: 20150921, end: 20150930
  2. FLAGYL [Suspect]
     Active Substance: METRONIDAZOLE\METRONIDAZOLE HYDROCHLORIDE
     Indication: PROCEDURAL PAIN
     Dosage: ?          QUANTITY:10 CAPSULE(S);?
     Dates: start: 20150921, end: 20150930

REACTIONS (3)
  - Quality of life decreased [None]
  - Neuropathy peripheral [None]
  - Autoimmune disorder [None]

NARRATIVE: CASE EVENT DATE: 20190501
